FAERS Safety Report 10559166 (Version 3)
Quarter: 2015Q3

REPORT INFORMATION
  Report Type: Report from Study
  Country: AT (occurrence: AT)
  Receive Date: 20141103
  Receipt Date: 20150707
  Transmission Date: 20151125
  Serious: Yes (Hospitalization)
  Sender: FDA-Public Use
  Company Number: AT-ROCHE-1482883

PATIENT
  Age: 16 Year
  Sex: Male
  Weight: 47.4 kg

DRUGS (17)
  1. ETOPOSIDE. [Suspect]
     Active Substance: ETOPOSIDE
     Indication: MEDULLOBLASTOMA
     Dosage: LAST DOSE PRIOR TO SAE: 01/JUL/2015
     Route: 048
     Dates: start: 20140409, end: 20141012
  2. CYCLOPHOSPHAMIDE. [Suspect]
     Active Substance: CYCLOPHOSPHAMIDE
     Indication: MEDULLOBLASTOMA
     Dosage: LAST DOSE PRIOR TO SAE: 01/JUL/2015
     Route: 048
     Dates: start: 20141013
  3. BEVACIZUMAB [Suspect]
     Active Substance: BEVACIZUMAB
     Indication: MEDULLOBLASTOMA
     Dosage: LAST DOSE PRIOR TO SAE: 01/JUL/2015
     Route: 042
     Dates: start: 20140409
  4. FENOFIBRATE. [Suspect]
     Active Substance: FENOFIBRATE
     Indication: MEDULLOBLASTOMA
     Dosage: LAST DOSE PRIOR TO SAE: 01/JUL/2015
     Route: 048
     Dates: start: 20140409
  5. NEXIUM [Concomitant]
     Active Substance: ESOMEPRAZOLE MAGNESIUM
     Indication: PROPHYLAXIS
     Route: 048
     Dates: start: 20140425
  6. FOLSAN [Concomitant]
     Active Substance: FOLIC ACID
     Indication: FOLATE DEFICIENCY
     Route: 048
     Dates: start: 20140906
  7. MAGNOSOLV [Concomitant]
     Indication: HEARING IMPAIRED
     Route: 048
     Dates: start: 20150519
  8. NEUROBION FORTE [Concomitant]
     Active Substance: CYANOCOBALAMIN\PYRIDOXINE HYDROCHLORIDE\THIAMINE DISULFIDE
     Dosage: 3 (UNIT NOT MENTIONED).
     Route: 048
     Dates: start: 20150519
  9. LIPOSOMAL CYTARABINE [Suspect]
     Active Substance: CYTARABINE
     Indication: MEDULLOBLASTOMA
     Dosage: LAST DOSE PRIOR TO SAE: 01/JUL/2015
     Route: 037
     Dates: start: 20140409
  10. OLEOVIT D3 [Concomitant]
     Indication: VITAMIN D DEFICIENCY
     Dosage: DOSE: 3200 IE
     Route: 048
     Dates: start: 20150227
  11. ETOPOSIDE. [Suspect]
     Active Substance: ETOPOSIDE
     Route: 037
  12. LIDAPRIM FORTE [Concomitant]
     Indication: PROPHYLAXIS
     Route: 048
     Dates: start: 20140409
  13. CELECOXIB. [Suspect]
     Active Substance: CELECOXIB
     Indication: MEDULLOBLASTOMA
     Dosage: LAST DOSE PRIOR TO SAE: 01/JUL/2015
     Route: 048
     Dates: start: 20140409
  14. THYREX [Concomitant]
     Active Substance: LEVOTHYROXINE SODIUM
     Indication: HYPOTHYROIDISM
     Route: 048
     Dates: start: 20120315
  15. LEVETIRACETAM. [Concomitant]
     Active Substance: LEVETIRACETAM
     Indication: EPILEPSY
     Route: 048
     Dates: start: 20140911
  16. THALIDOMIDE [Suspect]
     Active Substance: THALIDOMIDE
     Indication: MEDULLOBLASTOMA
     Route: 048
     Dates: start: 20140409
  17. EUSAPRIM (AUSTRIA) [Concomitant]
     Indication: PROPHYLAXIS
     Route: 048
     Dates: start: 20140409

REACTIONS (1)
  - Diplopia [Recovered/Resolved]

NARRATIVE: CASE EVENT DATE: 20150701
